FAERS Safety Report 8165319-X (Version None)
Quarter: 2012Q1

REPORT INFORMATION
  Report Type: 
  Country: None (occurrence: None)
  Receive Date: 20120227
  Receipt Date: 20120120
  Transmission Date: 20120608
  Serious: No
  Sender: FDA-Public Use
  Company Number: US-MYLANLABS-2011S1025059

PATIENT
  Sex: Male

DRUGS (7)
  1. DONEPEZIL HCL [Suspect]
  2. TAMSULOSIN HCL [Concomitant]
  3. PLAVIX [Concomitant]
  4. DONEPEZIL HCL [Suspect]
     Indication: COGNITIVE DISORDER
     Dates: start: 20110202
  5. MULTI-VITAMINS [Concomitant]
  6. ASPIRIN [Concomitant]
  7. FAMOTIDINE [Concomitant]

REACTIONS (3)
  - ABDOMINAL DISCOMFORT [None]
  - HEADACHE [None]
  - DIZZINESS [None]
